FAERS Safety Report 14293286 (Version 6)
Quarter: 2019Q2

REPORT INFORMATION
  Report Type: Report from Study
  Country: US (occurrence: US)
  Receive Date: 20171215
  Receipt Date: 20190619
  Transmission Date: 20190711
  Serious: Yes (Other)
  Sender: FDA-Public Use
  Company Number: PHEH2017US039980

PATIENT
  Sex: Female

DRUGS (1)
  1. COSENTYX [Suspect]
     Active Substance: SECUKINUMAB
     Indication: PRODUCT USED FOR UNKNOWN INDICATION
     Dosage: UNK
     Route: 058
     Dates: end: 201812

REACTIONS (18)
  - Talipes [Unknown]
  - Pain in extremity [Unknown]
  - Finger deformity [Unknown]
  - Diverticulum [Unknown]
  - Arthritis [Unknown]
  - Fibromyalgia [Unknown]
  - Arthralgia [Unknown]
  - Hand fracture [Unknown]
  - Brain neoplasm [Unknown]
  - Localised infection [Unknown]
  - Foot deformity [Unknown]
  - Skin exfoliation [Unknown]
  - Toe walking [Unknown]
  - Back injury [Unknown]
  - Pain [Unknown]
  - Malaise [Unknown]
  - Psoriatic arthropathy [Unknown]
  - Skin haemorrhage [Unknown]
